FAERS Safety Report 8637116 (Version 2)
Quarter: 2013Q2

REPORT INFORMATION
  Report Type: Spontaneous
  Country: US (occurrence: US)
  Receive Date: 20120627
  Receipt Date: 20130617
  Transmission Date: 20140414
  Serious: Yes (Hospitalization, Disabling, Other)
  Sender: FDA-Public Use
  Company Number: US-ASTRAZENECA-2012SE35571

PATIENT
  Age: 46 Year
  Sex: Female

DRUGS (20)
  1. NEXIUM [Suspect]
     Indication: GASTROOESOPHAGEAL REFLUX DISEASE
     Route: 048
  2. NEXIUM [Suspect]
     Indication: GASTROOESOPHAGEAL REFLUX DISEASE
     Dosage: DAILY
     Route: 048
     Dates: start: 2005
  3. NEXIUM [Suspect]
     Indication: GASTROOESOPHAGEAL REFLUX DISEASE
     Dosage: TWICE A DAY WHEN NEEDED.
     Route: 048
  4. NEXIUM [Suspect]
     Indication: GASTROOESOPHAGEAL REFLUX DISEASE
     Dosage: DAILY
     Route: 048
     Dates: start: 2011
  5. NEXIUM [Suspect]
     Indication: GASTROOESOPHAGEAL REFLUX DISEASE
     Route: 048
     Dates: start: 20081229
  6. ZANTAC [Concomitant]
  7. RANITIDINE [Concomitant]
     Dates: start: 20090922
  8. TAGAMET [Concomitant]
  9. TUMS [Concomitant]
  10. ALKA-SELTZER [Concomitant]
  11. ROLAIDS [Concomitant]
  12. CLONAZEPAM [Concomitant]
     Indication: ANXIETY
  13. CRESTOR [Concomitant]
     Indication: BLOOD CHOLESTEROL ABNORMAL
  14. TRAMADOL [Concomitant]
     Indication: OSTEOPOROSIS
  15. HYDROCHLOROTHIAZIDE [Concomitant]
     Indication: BLOOD PRESSURE
     Dates: start: 20081121
  16. HYDROCHLOROTHIAZIDE [Concomitant]
     Indication: CARDIAC DISORDER
     Dates: start: 20081121
  17. BUSPIRONE HCL [Concomitant]
  18. ASPIRIN [Concomitant]
     Indication: MYOCARDIAL INFARCTION
  19. TETRACYCILINE [Concomitant]
     Dates: start: 20081112
  20. METRONIDAZOLE [Concomitant]
     Dates: start: 20081023

REACTIONS (20)
  - Osteoporosis [Unknown]
  - Bipolar disorder [Unknown]
  - Myocardial infarction [Unknown]
  - Bone density decreased [Unknown]
  - Multiple fractures [Unknown]
  - Osteogenesis imperfecta [Unknown]
  - Cardiac disorder [Unknown]
  - Bone pain [Unknown]
  - Calcium deficiency [Unknown]
  - Lung disorder [Unknown]
  - Arthritis [Unknown]
  - Andropause [Unknown]
  - Hyperparathyroidism [Unknown]
  - Osteogenesis imperfecta [Unknown]
  - Rheumatoid arthritis [Unknown]
  - Vitamin D deficiency [Unknown]
  - Androgen deficiency [Unknown]
  - Gait disturbance [Unknown]
  - Pain [Unknown]
  - Depression [Unknown]
